FAERS Safety Report 4957996-9 (Version None)
Quarter: 2006Q1

REPORT INFORMATION
  Report Type: 
  Country: None (occurrence: None)
  Receive Date: 20060330
  Receipt Date: 20051220
  Transmission Date: 20060701
  Serious: Yes (Hospitalization, Other)
  Sender: FDA-Public Use
  Company Number: US-BRISTOL-MYERS SQUIBB COMPANY-13224233

PATIENT
  Age: 26 Year
  Sex: Female

DRUGS (2)
  1. REYATAZ [Suspect]
     Indication: PROPHYLAXIS AGAINST HIV INFECTION
     Route: 048
     Dates: start: 20051008, end: 20051012
  2. NORVIR [Suspect]
     Indication: PROPHYLAXIS AGAINST HIV INFECTION
     Route: 048
     Dates: start: 20051006, end: 20051012

REACTIONS (2)
  - BLOOD BILIRUBIN INCREASED [None]
  - OCULAR ICTERUS [None]
